FAERS Safety Report 22100204 (Version 1)
Quarter: 2023Q1

REPORT INFORMATION
  Report Type: Spontaneous
  Country: US (occurrence: US)
  Receive Date: 20230315
  Receipt Date: 20230315
  Transmission Date: 20230418
  Serious: Yes (Hospitalization, Other)
  Sender: FDA-Public Use
  Company Number: US-BoehringerIngelheim-2023-BI-225184

PATIENT
  Sex: Male

DRUGS (1)
  1. OFEV [Suspect]
     Active Substance: NINTEDANIB
     Indication: Product used for unknown indication
     Route: 048

REACTIONS (7)
  - Hypotension [Unknown]
  - Pyrexia [Unknown]
  - Oxygen saturation decreased [Unknown]
  - Decreased appetite [Unknown]
  - Urinary tract infection [Unknown]
  - Sepsis [Unknown]
  - Gastrointestinal bacterial infection [Unknown]
